FAERS Safety Report 14627705 (Version 3)
Quarter: 2018Q2

REPORT INFORMATION
  Report Type: Report from Study
  Country: BR (occurrence: BR)
  Receive Date: 20180312
  Receipt Date: 20180618
  Transmission Date: 20180711
  Serious: Yes (Other)
  Sender: FDA-Public Use
  Company Number: PHHY2018BR021301

PATIENT
  Age: 58 Year
  Sex: Female
  Weight: 44 kg

DRUGS (5)
  1. EXJADE [Suspect]
     Active Substance: DEFERASIROX
     Dosage: 3 DF, QD
     Route: 048
     Dates: start: 201801
  2. EXJADE [Suspect]
     Active Substance: DEFERASIROX
     Indication: IRON OVERLOAD
     Dosage: 1000 MG, QD
     Route: 048
  3. TALIGLUCERASE ALFA [Concomitant]
     Active Substance: TALIGLUCERASE ALFA
     Indication: GAUCHER^S DISEASE
     Dosage: UNK
     Route: 042
  4. EXJADE [Suspect]
     Active Substance: DEFERASIROX
     Dosage: 4 DF, QD (250 MG)
     Route: 048
     Dates: start: 201712
  5. TALIGLUCERASE ALFA [Concomitant]
     Active Substance: TALIGLUCERASE ALFA
     Dosage: 10 AMPOULE EVERY 15 DAYS (200 MG)
     Route: 048

REACTIONS (6)
  - Dysentery [Recovered/Resolved]
  - Skin irritation [Recovered/Resolved]
  - Visual impairment [Unknown]
  - Retching [Recovered/Resolved]
  - Headache [Recovered/Resolved]
  - Abdominal pain [Recovered/Resolved]

NARRATIVE: CASE EVENT DATE: 201712
